FAERS Safety Report 12394503 (Version 1)
Quarter: 2016Q2

REPORT INFORMATION
  Report Type: Spontaneous
  Country: US (occurrence: US)
  Receive Date: 20160523
  Receipt Date: 20160523
  Transmission Date: 20160815
  Serious: No
  Sender: FDA-Public Use
  Company Number: US-PFIZER INC-2016197311

PATIENT
  Sex: Female

DRUGS (2)
  1. LYRICA [Suspect]
     Active Substance: PREGABALIN
     Dosage: 150 MG, DAILY (75 MG 2 CAPSULES PER DAY)
  2. LYRICA [Suspect]
     Active Substance: PREGABALIN
     Dosage: 75 MG, DAILY (75 MG 1 CAPSULES PER DAY)

REACTIONS (5)
  - Pain [Unknown]
  - Mental disorder [Unknown]
  - Intentional product use issue [Unknown]
  - Anxiety [Unknown]
  - Stress [Unknown]
